FAERS Safety Report 8975044 (Version 1)
Quarter: 2012Q4

REPORT INFORMATION
  Report Type: 
  Country: DE (occurrence: DE)
  Receive Date: 20121219
  Receipt Date: 20121219
  Transmission Date: 20130627
  Serious: Yes (Hospitalization)
  Sender: FDA-Public Use
  Company Number: DE-UCBSA-073503

PATIENT

DRUGS (1)
  1. VIMPAT [Suspect]
     Dosage: UNKNOWN DOSE

REACTIONS (1)
  - Arrhythmia [Unknown]
